FAERS Safety Report 6015898-3 (Version None)
Quarter: 2008Q4

REPORT INFORMATION
  Report Type: 
  Country: None (occurrence: None)
  Receive Date: 20081222
  Receipt Date: 20081210
  Transmission Date: 20090506
  Serious: Yes (Life-Threatening, Hospitalization)
  Sender: FDA-Public Use
  Company Number: B0549933A

PATIENT
  Age: 76 Year
  Sex: Female

DRUGS (7)
  1. ARIXTRA [Suspect]
     Indication: THROMBOSIS PROPHYLAXIS
     Dosage: 2.5MG PER DAY
     Route: 058
     Dates: start: 20081030, end: 20081120
  2. LOVENOX [Suspect]
     Dosage: .4MG UNKNOWN
     Route: 065
     Dates: start: 20080901, end: 20081029
  3. DEROXAT [Concomitant]
     Indication: DRUG USE FOR UNKNOWN INDICATION
     Dosage: 20MG UNKNOWN
     Route: 065
  4. LEXOMIL [Concomitant]
     Indication: DRUG USE FOR UNKNOWN INDICATION
     Dosage: .25TAB PER DAY
     Route: 065
  5. TAHOR [Concomitant]
     Indication: DRUG USE FOR UNKNOWN INDICATION
     Dosage: 10MG PER DAY
     Route: 065
  6. DAFALGAN [Concomitant]
     Indication: DRUG USE FOR UNKNOWN INDICATION
     Dosage: 4G UNKNOWN
     Route: 065
  7. FORLAX [Concomitant]
     Indication: DRUG USE FOR UNKNOWN INDICATION
     Dosage: 20MG UNKNOWN
     Route: 065

REACTIONS (4)
  - ALTERED STATE OF CONSCIOUSNESS [None]
  - CEREBRAL HAEMATOMA [None]
  - HEMIPLEGIA [None]
  - INTRACRANIAL PRESSURE INCREASED [None]
